FAERS Safety Report 5097959-9 (Version None)
Quarter: 2006Q3

REPORT INFORMATION
  Report Type: 
  Country: None (occurrence: None)
  Receive Date: 20060905
  Receipt Date: 20060829
  Transmission Date: 20061208
  Serious: Yes (Other)
  Sender: FDA-Public Use
  Company Number: GXKR2006DE05279

PATIENT
  Sex: Female

DRUGS (3)
  1. GABAPENTIN [Suspect]
     Dosage: 300 MG, ORAL
     Route: 048
  2. SIMVASTATIN [Suspect]
     Dosage: 30 MG, ORAL
     Route: 048
  3. CIPRALEX (ESCITALOPRAM) [Concomitant]

REACTIONS (3)
  - ALANINE AMINOTRANSFERASE INCREASED [None]
  - ASPARTATE AMINOTRANSFERASE INCREASED [None]
  - GAMMA-GLUTAMYLTRANSFERASE INCREASED [None]
